FAERS Safety Report 6504094-9 (Version None)
Quarter: 2009Q4

REPORT INFORMATION
  Report Type: 
  Country: None (occurrence: None)
  Receive Date: 20091216
  Receipt Date: 20091216
  Transmission Date: 20100525
  Serious: Yes (Other)
  Sender: FDA-Public Use
  Company Number: None

PATIENT
  Age: 51 Year
  Sex: Male
  Weight: 65.9 kg

DRUGS (4)
  1. MUCINEX DM [Suspect]
     Indication: CHEST DISCOMFORT
     Dosage: 1 TABLET 600MG/30MG 1 TABLET EVERY 12 H ORAL 047
     Route: 048
     Dates: start: 20090923
  2. MUCINEX DM [Suspect]
     Indication: CHEST DISCOMFORT
     Dosage: 1 TABLET 600MG/30MG 1 TABLET EVERY 12 H ORAL 047
     Route: 048
     Dates: start: 20090926
  3. MUCINEX [Suspect]
     Indication: CHEST DISCOMFORT
     Dosage: 1 TABLET 600MG 1 TABLET EVERY12 HR ORAL 047
     Route: 048
     Dates: start: 20090929
  4. MUCINEX [Suspect]
     Indication: CHEST DISCOMFORT
     Dosage: 1 TABLET 600MG 1 TABLET EVERY12 HR ORAL 047
     Route: 048
     Dates: start: 20091006

REACTIONS (2)
  - DRUG INTERACTION [None]
  - HAEMORRHAGE URINARY TRACT [None]
